FAERS Safety Report 24652239 (Version 1)
Quarter: 2024Q4

REPORT INFORMATION
  Report Type: Spontaneous
  Country: US (occurrence: None)
  Receive Date: 20241121
  Receipt Date: 20241121
  Transmission Date: 20250115
  Serious: Yes (Death, Hospitalization)
  Sender: Public
  Company Number: None

PATIENT
  Age: 83 Year
  Sex: Male

DRUGS (1)
  1. LENALIDOMIDE [Suspect]
     Active Substance: LENALIDOMIDE
     Indication: Plasma cell myeloma
     Dosage: FREQUENCY : DAILY;?
     Route: 048
     Dates: start: 20240517, end: 20241031

REACTIONS (5)
  - Laboratory test abnormal [None]
  - General physical health deterioration [None]
  - Gait inability [None]
  - Weight decreased [None]
  - Incontinence [None]

NARRATIVE: CASE EVENT DATE: 20241031
